FAERS Safety Report 24404114 (Version 1)
Quarter: 2024Q4

REPORT INFORMATION
  Report Type: Spontaneous
  Country: US (occurrence: US)
  Receive Date: 20241007
  Receipt Date: 20241007
  Transmission Date: 20250114
  Serious: No
  Sender: RANBAXY
  Company Number: US-SUN PHARMACEUTICAL INDUSTRIES LTD-2024R1-461925

PATIENT
  Age: 34 Year
  Sex: Female

DRUGS (2)
  1. CEQUA [Suspect]
     Active Substance: CYCLOSPORINE
     Indication: Product used for unknown indication
     Dosage: UNKNOWN
     Route: 047
     Dates: start: 20210101
  2. PANTOPRAZOLE [Concomitant]
     Active Substance: PANTOPRAZOLE
     Indication: Gastrooesophageal reflux disease
     Dosage: 40 MILLIGRAM

REACTIONS (3)
  - Eye irritation [Unknown]
  - Ocular hyperaemia [Unknown]
  - Therapy cessation [Recovering/Resolving]

NARRATIVE: CASE EVENT DATE: 20240501
